FAERS Safety Report 7761143-8 (Version None)
Quarter: 2011Q3

REPORT INFORMATION
  Report Type: 
  Country: None (occurrence: None)
  Receive Date: 20110915
  Receipt Date: 20110614
  Transmission Date: 20111222
  Serious: Yes (Hospitalization)
  Sender: FDA-Public Use
  Company Number: FK201101219

PATIENT
  Age: 77 Year
  Sex: Female

DRUGS (3)
  1. ONDANSETRON [Concomitant]
  2. FLUOROURACIL [Suspect]
     Indication: RECTAL CANCER
     Dosage: 790 MG, INTRAVENOUS
     Route: 042
  3. CALCIUM FOLINATE (CALCIUM FOLINATE) (CALCIUM FOLINATE) [Concomitant]

REACTIONS (9)
  - IMPULSIVE BEHAVIOUR [None]
  - AGGRESSION [None]
  - ABNORMAL BEHAVIOUR [None]
  - ANXIETY [None]
  - INSOMNIA [None]
  - DYSPHONIA [None]
  - MANIA [None]
  - LOGORRHOEA [None]
  - DELUSION OF GRANDEUR [None]
